FAERS Safety Report 15536942 (Version 1)
Quarter: 2018Q4

REPORT INFORMATION
  Report Type: Spontaneous
  Country: US (occurrence: US)
  Receive Date: 20181022
  Receipt Date: 20181022
  Transmission Date: 20190205
  Serious: Yes (Other)
  Sender: FDA-Public Use
  Company Number: None

PATIENT
  Age: 44 Year
  Sex: Female
  Weight: 68.3 kg

DRUGS (6)
  1. AZITHROMYCIN ANHYDROUS. [Concomitant]
     Active Substance: AZITHROMYCIN ANHYDROUS
  2. VITAMIN D3 [Concomitant]
     Active Substance: CHOLECALCIFEROL
  3. ZENPEP [Concomitant]
     Active Substance: PANCRELIPASE AMYLASE\PANCRELIPASE LIPASE\PANCRELIPASE PROTEASE
     Dates: start: 19760101
  4. SYMDEKO [Suspect]
     Active Substance: IVACAFTOR\TEZACAFTOR
     Indication: CYSTIC FIBROSIS
     Route: 048
  5. PULMOZYME [Concomitant]
     Active Substance: DORNASE ALFA
  6. ALBUTEROL. [Concomitant]
     Active Substance: ALBUTEROL

REACTIONS (2)
  - Anxiety [None]
  - Loss of personal independence in daily activities [None]

NARRATIVE: CASE EVENT DATE: 20181022
